FAERS Safety Report 15300707 (Version 1)
Quarter: 2018Q3

REPORT INFORMATION
  Report Type: Report from Study
  Country: BR (occurrence: BR)
  Receive Date: 20180821
  Receipt Date: 20180821
  Transmission Date: 20181010
  Serious: Yes (Hospitalization)
  Sender: FDA-Public Use
  Company Number: PHHY2017BR042595

PATIENT
  Age: 93 Year
  Sex: Male
  Weight: 62 kg

DRUGS (7)
  1. TEGRETOL [Suspect]
     Active Substance: CARBAMAZEPINE
     Indication: AGITATION
     Dosage: 5 MG, UNK
     Route: 065
     Dates: start: 20180710
  2. MIRTAZAPINA [Suspect]
     Active Substance: MIRTAZAPINE
     Dosage: 15 MG, UNK
     Route: 048
  3. MIRTAZAPINA [Suspect]
     Active Substance: MIRTAZAPINE
     Indication: PRODUCT USED FOR UNKNOWN INDICATION
     Dosage: 30 MG, UNK
     Route: 065
  4. QUETIAPINA [Suspect]
     Active Substance: QUETIAPINE
     Indication: ANXIETY
     Dosage: 1 DF, QD
     Route: 065
     Dates: start: 20180330, end: 20180708
  5. RIVOTRIL [Suspect]
     Active Substance: CLONAZEPAM
     Indication: SLEEP DISORDER
     Dosage: 5 DRP, QD
     Route: 048
     Dates: end: 20180709
  6. EXELON PATCH [Suspect]
     Active Substance: RIVASTIGMINE
     Indication: DEMENTIA ALZHEIMER^S TYPE
     Dosage: 4.6 MG, QD PATCH 5 (CM2)
     Route: 062
  7. EXELON PATCH [Suspect]
     Active Substance: RIVASTIGMINE
     Dosage: 9.5 MG, QD PATCH 10 CM2
     Route: 062

REACTIONS (19)
  - Nervousness [Recovered/Resolved]
  - Weight decreased [Not Recovered/Not Resolved]
  - Asthenia [Not Recovered/Not Resolved]
  - Eating disorder [Recovering/Resolving]
  - Disorientation [Unknown]
  - Tension [Recovered/Resolved]
  - Aggression [Recovered/Resolved]
  - Diarrhoea [Not Recovered/Not Resolved]
  - Dysuria [Recovered/Resolved]
  - Gastric disorder [Unknown]
  - Increased appetite [Unknown]
  - Anxiety [Not Recovered/Not Resolved]
  - Urinary tract infection [Recovered/Resolved]
  - Memory impairment [Not Recovered/Not Resolved]
  - Weight increased [Unknown]
  - Somnambulism [Recovering/Resolving]
  - Gait disturbance [Unknown]
  - Nightmare [Recovering/Resolving]
  - Sleep disorder [Recovering/Resolving]

NARRATIVE: CASE EVENT DATE: 20180319
